FAERS Safety Report 8534119-0 (Version None)
Quarter: 2012Q3

REPORT INFORMATION
  Report Type: 
  Country: None (occurrence: None)
  Receive Date: 20120724
  Receipt Date: 20120722
  Transmission Date: 20120928
  Serious: No
  Sender: FDA-Public Use
  Company Number: US-BAYER-2012-073352

PATIENT
  Sex: Male

DRUGS (3)
  1. LEXAPRO [Interacting]
     Dosage: UNK
     Dates: start: 20020101
  2. LEVITRA [Suspect]
     Dosage: UNK
     Dates: start: 20090101
  3. ADDERALL XR 10 [Interacting]
     Dosage: UNK
     Dates: start: 20040101

REACTIONS (1)
  - THERAPEUTIC RESPONSE UNEXPECTED [None]
